FAERS Safety Report 21572955 (Version 2)
Quarter: 2022Q4

REPORT INFORMATION
  Report Type: Spontaneous
  Country: BR (occurrence: BR)
  Receive Date: 20221109
  Receipt Date: 20221110
  Transmission Date: 20230112
  Serious: Yes (Hospitalization, Other)
  Sender: FDA-Public Use
  Company Number: BR-009507513-2211BRA001445

PATIENT
  Sex: Male
  Weight: 85 kg

DRUGS (7)
  1. TEMODAL [Suspect]
     Active Substance: TEMOZOLOMIDE
     Indication: Brain neoplasm
     Dosage: CYCLE 1
     Route: 048
     Dates: start: 20220202, end: 20220330
  2. TEMODAL [Suspect]
     Active Substance: TEMOZOLOMIDE
     Dosage: CYCLE 2
     Route: 048
     Dates: start: 20220414, end: 20220418
  3. TEMODAL [Suspect]
     Active Substance: TEMOZOLOMIDE
     Dosage: CYCLE 3
     Route: 048
     Dates: start: 20220512, end: 20220516
  4. TEMODAL [Suspect]
     Active Substance: TEMOZOLOMIDE
     Dosage: 390 MILLIGRAM, QD
     Route: 048
     Dates: start: 20220725, end: 2022
  5. VIMPAT [Suspect]
     Active Substance: LACOSAMIDE
     Dosage: UNK
     Dates: start: 202205
  6. KEPPRA [Suspect]
     Active Substance: LEVETIRACETAM
     Dosage: 750 MILLIGRAM, QD
     Route: 048
     Dates: start: 20220423, end: 20220423
  7. CLOBAZAM [Suspect]
     Active Substance: CLOBAZAM
     Dosage: UNK

REACTIONS (20)
  - Hypotension [Recovered/Resolved]
  - Angioedema [Recovered/Resolved]
  - Seizure [Unknown]
  - Erythema [Recovered/Resolved]
  - Pyrexia [Unknown]
  - Rash [Unknown]
  - Hyperaemia [Recovered/Resolved]
  - Drug reaction with eosinophilia and systemic symptoms [Unknown]
  - Stevens-Johnson syndrome [Unknown]
  - Toxic epidermal necrolysis [Unknown]
  - Skin exfoliation [Unknown]
  - Drug-induced liver injury [Unknown]
  - Neurological symptom [Unknown]
  - Discomfort [Unknown]
  - Rash [Unknown]
  - Photosensitivity reaction [Unknown]
  - Leukocytosis [Unknown]
  - Skin ulcer [Unknown]
  - Eosinophilia [Unknown]
  - Overdose [Unknown]

NARRATIVE: CASE EVENT DATE: 20220101
